FAERS Safety Report 10382422 (Version 1)
Quarter: 2014Q3

REPORT INFORMATION
  Report Type: Spontaneous
  Country: US (occurrence: None)
  Receive Date: 20140811
  Receipt Date: 20140811
  Transmission Date: 20150326
  Serious: Yes (Other)
  Sender: FDA-Public Use
  Company Number: AUR-APL-2014-08465

PATIENT
  Age: 72 Year
  Sex: Male

DRUGS (3)
  1. VISMODEGIB [Suspect]
     Active Substance: VISMODEGIB
     Indication: BASAL CELL CARCINOMA
  2. NAPROXEN. [Suspect]
     Active Substance: NAPROXEN
     Indication: MYALGIA
  3. ASPIRIN. [Suspect]
     Active Substance: ASPIRIN
     Indication: MYALGIA

REACTIONS (2)
  - Cholestatic liver injury [None]
  - Nausea [None]
